FAERS Safety Report 8139665-X (Version None)
Quarter: 2012Q1

REPORT INFORMATION
  Report Type: 
  Country: None (occurrence: None)
  Receive Date: 20120215
  Receipt Date: 20120209
  Transmission Date: 20120608
  Serious: Yes (Death)
  Sender: FDA-Public Use
  Company Number: PHEH2012US003523

PATIENT
  Age: 67 Year
  Sex: Male

DRUGS (1)
  1. GLEEVEC [Suspect]
     Indication: NEOPLASM
     Dosage: 400 MG, QD
     Route: 048
     Dates: start: 20110714, end: 20110907

REACTIONS (1)
  - DEATH [None]
